FAERS Safety Report 13089506 (Version 2)
Quarter: 2017Q1

REPORT INFORMATION
  Report Type: Spontaneous
  Country: US (occurrence: US)
  Receive Date: 20170105
  Receipt Date: 20170213
  Transmission Date: 20170428
  Serious: Yes (Other)
  Sender: FDA-Public Use
  Company Number: US-PFIZER INC-2017002187

PATIENT
  Age: 63 Year
  Sex: Female
  Weight: 50 kg

DRUGS (1)
  1. CHANTIX [Suspect]
     Active Substance: VARENICLINE TARTRATE
     Indication: SMOKING CESSATION THERAPY
     Dosage: UNK
     Dates: start: 2016, end: 2017

REACTIONS (10)
  - Thinking abnormal [Unknown]
  - Vomiting [Unknown]
  - Irritability [Unknown]
  - Nausea [Unknown]
  - Malaise [Unknown]
  - Thyroid disorder [Unknown]
  - Dysphonia [Unknown]
  - Nodule [Unknown]
  - Increased appetite [Unknown]
  - Emotional disorder [Unknown]

NARRATIVE: CASE EVENT DATE: 20170102
